FAERS Safety Report 9472945 (Version 1)
Quarter: 2013Q3

REPORT INFORMATION
  Report Type: Spontaneous
  Country: US (occurrence: US)
  Receive Date: 20130823
  Receipt Date: 20130823
  Transmission Date: 20140515
  Serious: Yes (Other)
  Sender: FDA-Public Use
  Company Number: US-BRISTOL-MYERS SQUIBB COMPANY-17253774

PATIENT
  Age: 61 Year
  Sex: Male
  Weight: 81.63 kg

DRUGS (2)
  1. SPRYCEL [Suspect]
     Indication: CHRONIC MYELOID LEUKAEMIA
  2. TAMIFLU [Concomitant]
     Indication: INFLUENZA

REACTIONS (1)
  - Full blood count decreased [Unknown]
